FAERS Safety Report 8180617-1 (Version None)
Quarter: 2012Q1

REPORT INFORMATION
  Report Type: 
  Country: None (occurrence: None)
  Receive Date: 20120301
  Receipt Date: 20120301
  Transmission Date: 20120608
  Serious: No
  Sender: FDA-Public Use
  Company Number: None

PATIENT
  Sex: Male
  Weight: 56.6996 kg

DRUGS (1)
  1. LEVAQUIN [Suspect]
     Indication: PRODUCT USED FOR UNKNOWN INDICATION
     Dosage: 250 MG ONCE DAILY PILL
     Dates: start: 20120127, end: 20120203

REACTIONS (4)
  - OEDEMA PERIPHERAL [None]
  - GAIT DISTURBANCE [None]
  - DYSSTASIA [None]
  - PAIN IN EXTREMITY [None]
